FAERS Safety Report 15183586 (Version 6)
Quarter: 2018Q3

REPORT INFORMATION
  Report Type: Report from Study
  Country: JP (occurrence: JP)
  Receive Date: 20180723
  Receipt Date: 20180829
  Transmission Date: 20181010
  Serious: Yes (Hospitalization, Other)
  Sender: FDA-Public Use
  Company Number: JP-TEVA-2018-JP-928556

PATIENT
  Age: 71 Year
  Sex: Male

DRUGS (13)
  1. BENDAMUSTINE HYDROCHLORIDE. [Suspect]
     Active Substance: BENDAMUSTINE HYDROCHLORIDE
     Dosage: 120MG/M2X1/DAY, CYCLIC (CYCLE 2)
     Route: 042
     Dates: start: 20180612, end: 20180613
  2. RITUXIMAB. [Suspect]
     Active Substance: RITUXIMAB
     Indication: DIFFUSE LARGE B-CELL LYMPHOMA
     Dosage: 375MG/M2X1/DAY, CYCLIC (CYCLE 1) (DAY 1)
     Route: 041
     Dates: start: 20180521
  3. ITRACONAZOLE. [Concomitant]
     Active Substance: ITRACONAZOLE
     Indication: INFECTION PROPHYLAXIS
     Dosage: 100 MG, ONCE DAILY (AFTER BREAKFAST),
     Route: 048
     Dates: start: 20180528
  4. ACICLOVIR [Concomitant]
     Active Substance: ACYCLOVIR
     Indication: INFECTION PROPHYLAXIS
     Dosage: 200 MG, ONCE DAILY (AFTER BREAKFAST)
     Route: 048
     Dates: start: 20180528
  5. RITUXIMAB. [Suspect]
     Active Substance: RITUXIMAB
     Dosage: 375MG/M2X1/DAY, CYCLIC (CYCLE 3)
     Route: 041
     Dates: start: 20180717
  6. RABEPRAZOLE [Concomitant]
     Active Substance: RABEPRAZOLE
     Indication: GASTRIC MUCOSAL LESION
     Dosage: 10 MG, ONCE DAILY (AFTER BREAKFAST)
     Route: 048
     Dates: start: 201609
  7. AMLODIPINE [Concomitant]
     Active Substance: AMLODIPINE BESYLATE
     Indication: HYPERTENSION
     Dosage: 5 MG, ONCE DAILY (AFTER BREAKFAST)
     Route: 048
     Dates: start: 20151221
  8. PRAVASTATIN SODIUM. [Concomitant]
     Active Substance: PRAVASTATIN SODIUM
     Indication: DYSLIPIDAEMIA
     Dosage: 10 MG, ONCE DAILY (AFTER DINNER)
     Route: 048
     Dates: start: 201609
  9. BENDAMUSTINE HYDROCHLORIDE. [Suspect]
     Active Substance: BENDAMUSTINE HYDROCHLORIDE
     Indication: DIFFUSE LARGE B-CELL LYMPHOMA
     Dosage: 120MG/M2X1/DAY, CYCLIC (CYCLE 1) (DAY 2?3)
     Route: 042
     Dates: start: 20180522, end: 20180523
  10. RITUXIMAB. [Suspect]
     Active Substance: RITUXIMAB
     Dosage: 375MG/M2X1/DAY, CYCLIC (CYCLE 2)
     Route: 041
     Dates: start: 20180611
  11. BENDAMUSTINE HYDROCHLORIDE. [Suspect]
     Active Substance: BENDAMUSTINE HYDROCHLORIDE
     Dosage: 120MG/M2X1/DAY, CYCLIC (CYCLE 3)
     Route: 042
     Dates: start: 20180717, end: 20180817
  12. VILDAGLIPTIN [Concomitant]
     Active Substance: VILDAGLIPTIN
     Indication: DIABETES MELLITUS
     Dosage: 100 MG, ONCE DAILY (AFTER BREAKFAST AND DINNER)
     Route: 048
     Dates: start: 201609
  13. TRIMETHOPRIM SULFAMETHOXAZOLE [Concomitant]
     Active Substance: SULFAMETHOXAZOLE\TRIMETHOPRIM
     Indication: INFECTION PROPHYLAXIS
     Dosage: 1 DF (TABLET), ONCE DAILY (AFTER BREAKFAST)
     Route: 048
     Dates: start: 20180528

REACTIONS (2)
  - VIth nerve paralysis [Recovering/Resolving]
  - Diffuse large B-cell lymphoma recurrent [Not Recovered/Not Resolved]

NARRATIVE: CASE EVENT DATE: 20180709
